FAERS Safety Report 21841697 (Version 2)
Quarter: 2023Q1

REPORT INFORMATION
  Report Type: Report from Study
  Country: US (occurrence: US)
  Receive Date: 20230110
  Receipt Date: 20230301
  Transmission Date: 20230418
  Serious: Yes (Hospitalization)
  Sender: FDA-Public Use
  Company Number: US-ABBVIE-4263661

PATIENT
  Sex: Female

DRUGS (1)
  1. IMBRUVICA [Suspect]
     Active Substance: IBRUTINIB
     Indication: Waldenstrom^s macroglobulinaemia
     Route: 048
     Dates: start: 20221115, end: 20221230

REACTIONS (7)
  - General physical health deterioration [Unknown]
  - Back pain [Unknown]
  - Hypothyroidism [Unknown]
  - Muscle spasms [Not Recovered/Not Resolved]
  - Hepatitis [Unknown]
  - Influenza [Unknown]
  - Rash [Unknown]
